FAERS Safety Report 8142744-4 (Version None)
Quarter: 2012Q1

REPORT INFORMATION
  Report Type: 
  Country: None (occurrence: None)
  Receive Date: 20120216
  Receipt Date: 20120208
  Transmission Date: 20120608
  Serious: Yes (Death, Hospitalization)
  Sender: FDA-Public Use
  Company Number: US-MPIJNJ-2011-06302

PATIENT
  Sex: Male

DRUGS (29)
  1. VELCADE [Suspect]
     Dosage: 1.3 MG/M2, UNK
     Dates: start: 20110629, end: 20110824
  2. CALCITRIOL [Concomitant]
     Indication: PRODUCT USED FOR UNKNOWN INDICATION
     Dosage: .5 UNK, UNK
     Route: 048
  3. JANTOVEN [Concomitant]
     Indication: PRODUCT USED FOR UNKNOWN INDICATION
     Dosage: 3 MG, UNK
     Route: 048
  4. ZESTRIL [Concomitant]
     Indication: PRODUCT USED FOR UNKNOWN INDICATION
     Dosage: 5 MG, UNK
     Route: 048
  5. NORVASC [Concomitant]
     Indication: PRODUCT USED FOR UNKNOWN INDICATION
     Dosage: 10 MG, UNK
     Route: 048
  6. DEXAMETHASONE [Suspect]
     Indication: MULTIPLE MYELOMA
     Dosage: 40 MG, CYCLIC
     Route: 042
     Dates: start: 20110926, end: 20111010
  7. LACTOBACILLUS [Concomitant]
     Indication: PRODUCT USED FOR UNKNOWN INDICATION
     Route: 048
  8. LASIX [Concomitant]
     Indication: PRODUCT USED FOR UNKNOWN INDICATION
     Dosage: 80 MG, UNK
     Route: 048
  9. VELCADE [Suspect]
     Dosage: 1.3 MG/M2, UNK
     Dates: start: 20100920, end: 20101227
  10. PREDNISONE [Suspect]
     Indication: MULTIPLE MYELOMA
     Dosage: 60 MG/M2, CYCLIC
     Dates: start: 20100920, end: 20101227
  11. PROZAC [Concomitant]
     Indication: PRODUCT USED FOR UNKNOWN INDICATION
     Dosage: 20 MG, UNK
     Route: 048
  12. NU-IRON [Concomitant]
     Indication: PRODUCT USED FOR UNKNOWN INDICATION
     Dosage: 150 MG, UNK
     Route: 048
  13. ZOCOR [Concomitant]
     Indication: PRODUCT USED FOR UNKNOWN INDICATION
     Dosage: 40 MG, UNK
     Route: 048
  14. WELLBUTRIN [Concomitant]
     Indication: PRODUCT USED FOR UNKNOWN INDICATION
     Dosage: 100 MG, UNK
     Route: 048
  15. THALIDOMIDE [Suspect]
     Indication: MULTIPLE MYELOMA
     Dosage: 50 MG, CYCLIC
     Route: 048
     Dates: start: 20100910, end: 20101122
  16. PROCRIT                            /00909301/ [Concomitant]
     Indication: PRODUCT USED FOR UNKNOWN INDICATION
     Dosage: UNK
     Dates: start: 20101011, end: 20111027
  17. SENOKOT [Concomitant]
     Indication: PRODUCT USED FOR UNKNOWN INDICATION
  18. PENICILLIN V POTASSIUM [Concomitant]
     Indication: PRODUCT USED FOR UNKNOWN INDICATION
     Dosage: 500 MG, UNK
     Route: 048
  19. VELCADE [Suspect]
     Dosage: 1.3 MG/M2, UNK
     Dates: start: 20101230, end: 20110629
  20. CYCLOPHOSPHAMIDE [Suspect]
     Indication: MULTIPLE MYELOMA
     Dosage: 300 MG/M2, CYCLIC
     Route: 048
     Dates: start: 20110926, end: 20111010
  21. CARVEDILOL [Concomitant]
     Indication: PRODUCT USED FOR UNKNOWN INDICATION
     Dosage: 25 MG, UNK
     Route: 048
  22. CYCLOPHOSPHAMIDE [Suspect]
     Dosage: 1.3 MG/M2, UNK
     Dates: start: 20101230, end: 20110629
  23. MELPHALAN HYDROCHLORIDE [Suspect]
     Indication: MULTIPLE MYELOMA
     Dosage: 9 MG/M2, CYCLIC
     Route: 048
     Dates: start: 20101004, end: 20101122
  24. REMERON [Concomitant]
     Indication: PRODUCT USED FOR UNKNOWN INDICATION
     Dosage: 30 MG, UNK
     Route: 048
  25. VELCADE [Suspect]
     Indication: MULTIPLE MYELOMA
     Dosage: 1.3 MG/M2, CYCLIC
     Dates: start: 20110831, end: 20111017
  26. CYCLOPHOSPHAMIDE [Suspect]
     Dosage: 250 MG/M2, UNK
     Dates: start: 20110629, end: 20110824
  27. KLOR-CON [Concomitant]
     Indication: PRODUCT USED FOR UNKNOWN INDICATION
     Dosage: 20 MEQ, UNK
     Route: 048
  28. SYNTHROID [Concomitant]
     Indication: PRODUCT USED FOR UNKNOWN INDICATION
     Dosage: UNK UG, UNK
     Route: 048
  29. AVINZA [Concomitant]
     Indication: PRODUCT USED FOR UNKNOWN INDICATION
     Dosage: 60 MG, UNK

REACTIONS (2)
  - CELLULITIS [None]
  - CARDIAC FAILURE CONGESTIVE [None]
